FAERS Safety Report 14191253 (Version 13)
Quarter: 2018Q3

REPORT INFORMATION
  Report Type: Spontaneous
  Country: CA (occurrence: CA)
  Receive Date: 20171115
  Receipt Date: 20180918
  Transmission Date: 20181010
  Serious: Yes (Hospitalization, Other)
  Sender: FDA-Public Use
  Company Number: CA-CELLTRION INC.-2017CA009010

PATIENT

DRUGS (17)
  1. INFLECTRA [Suspect]
     Active Substance: INFLIXIMAB-DYYB
     Dosage: 520 MG CYCLIC THEN EVERY 4 WEEKS
     Route: 042
     Dates: start: 20171204, end: 20171204
  2. INFLECTRA [Suspect]
     Active Substance: INFLIXIMAB-DYYB
     Dosage: 500 MG, CYCLIC (EVERY 4   WEEKS)
     Route: 042
  3. INFLECTRA [Suspect]
     Active Substance: INFLIXIMAB-DYYB
     Dosage: 500 MG, CYCLIC (EVERY 6 WEEKS)
     Dates: start: 20180711
  4. PREDNISONE. [Concomitant]
     Active Substance: PREDNISONE
     Dosage: UNK
     Route: 042
     Dates: start: 201703
  5. INFLECTRA [Suspect]
     Active Substance: INFLIXIMAB-DYYB
     Dosage: 10 MG/KG EVERY 4 WEEKS;
     Route: 042
     Dates: start: 20170623, end: 20171106
  6. INFLECTRA [Suspect]
     Active Substance: INFLIXIMAB-DYYB
     Dosage: 450 MG OR 10 MG PER KG, CYCLIC, EVERY 4 WEEKS
     Route: 042
     Dates: start: 20171204, end: 20171204
  7. CORTISONE [Concomitant]
     Active Substance: CORTISONE\HYDROCORTISONE
     Route: 042
  8. INFLECTRA [Suspect]
     Active Substance: INFLIXIMAB-DYYB
     Dosage: 500 MG, (EVERY 6 WEEKS)
     Dates: start: 20180905
  9. INFLECTRA [Suspect]
     Active Substance: INFLIXIMAB-DYYB
     Dosage: 500 MG, CYCLIC (EVERY 6 WEEKS)
     Route: 042
     Dates: start: 20180502
  10. INFLECTRA [Suspect]
     Active Substance: INFLIXIMAB-DYYB
     Dosage: 500 MG, CYCLIC (EVERY 6 WEEKS)
     Dates: start: 20180808
  11. INFLECTRA [Suspect]
     Active Substance: INFLIXIMAB-DYYB
     Dosage: 520 MG THEN EVERY 4 WEEKS
     Route: 042
     Dates: start: 20170602
  12. INFLECTRA [Suspect]
     Active Substance: INFLIXIMAB-DYYB
     Indication: CROHN^S DISEASE
     Dosage: 500 MG, CYCLIC ON WEEKS 0,2,6 THEN EVERY 8 WEEKS
     Route: 042
     Dates: start: 20170602, end: 20170602
  13. INFLECTRA [Suspect]
     Active Substance: INFLIXIMAB-DYYB
     Dosage: 450 MG, CYCLIC (AT 6 WEEKS, THEN EVERY 8 WEEKS)
     Route: 042
     Dates: start: 20170619, end: 20171106
  14. INFLECTRA [Suspect]
     Active Substance: INFLIXIMAB-DYYB
     Dosage: 450 MG, CYCLIC (AT 6 WEEKS, THEN EVERY 8 WEEKS)
     Route: 042
     Dates: start: 20170720
  15. INFLECTRA [Suspect]
     Active Substance: INFLIXIMAB-DYYB
     Dosage: 500 MG, CYCLIC (EVERY 6 WEEKS)
     Route: 042
     Dates: start: 20180502
  16. INFLECTRA [Suspect]
     Active Substance: INFLIXIMAB-DYYB
     Dosage: 500 MG, CYCLIC (EVERY 6 WEEKS)
     Route: 042
     Dates: start: 20180613
  17. INFLECTRA [Suspect]
     Active Substance: INFLIXIMAB-DYYB
     Dosage: 500 MG, CYCLIC (EVERY 4 WEEKS)
     Route: 042
     Dates: start: 20171204

REACTIONS (27)
  - Clostridium difficile infection [Recovered/Resolved]
  - Anal fistula [Unknown]
  - Abdominal abscess [Unknown]
  - Product use issue [Unknown]
  - Body temperature fluctuation [Unknown]
  - Hyperhidrosis [Unknown]
  - Hot flush [Unknown]
  - Uveitis [Unknown]
  - Malaise [Not Recovered/Not Resolved]
  - Erythema nodosum [Unknown]
  - Aphthous ulcer [Unknown]
  - Feeling abnormal [Unknown]
  - Condition aggravated [Unknown]
  - Abscess [Unknown]
  - Musculoskeletal stiffness [Not Recovered/Not Resolved]
  - Weight increased [Unknown]
  - Joint stiffness [Not Recovered/Not Resolved]
  - Arthralgia [Unknown]
  - Pyoderma gangrenosum [Unknown]
  - Anal abscess [Unknown]
  - Drug ineffective [Not Recovered/Not Resolved]
  - Fistula [Unknown]
  - Heart rate irregular [Unknown]
  - Abdominal pain [Unknown]
  - Erythema [Not Recovered/Not Resolved]
  - Drug effect incomplete [Not Recovered/Not Resolved]
  - Abscess oral [Unknown]

NARRATIVE: CASE EVENT DATE: 2017
